FAERS Safety Report 23308697 (Version 1)
Quarter: 2023Q4

REPORT INFORMATION
  Report Type: Spontaneous
  Country: US (occurrence: None)
  Receive Date: 20231217
  Receipt Date: 20231217
  Transmission Date: 20240110
  Serious: Yes (Hospitalization, Disabling)
  Sender: FDA-Public Use
  Company Number: None

PATIENT
  Age: 60 Year
  Sex: Female
  Weight: 51.75 kg

DRUGS (1)
  1. LEVOFLOXACIN [Suspect]
     Active Substance: LEVOFLOXACIN
     Indication: Pseudomonas infection
     Dosage: OTHER QUANTITY : 28 TABLET(S);?FREQUENCY : TWICE A DAY;?
     Route: 048

REACTIONS (12)
  - Limb discomfort [None]
  - Bedridden [None]
  - Neuropathy peripheral [None]
  - Headache [None]
  - Arthralgia [None]
  - Myalgia [None]
  - Pneumonia [None]
  - Pericarditis [None]
  - Electrocardiogram abnormal [None]
  - Respiratory disorder [None]
  - Cerebral disorder [None]
  - Memory impairment [None]

NARRATIVE: CASE EVENT DATE: 20231116
